FAERS Safety Report 8433284-3 (Version None)
Quarter: 2012Q2

REPORT INFORMATION
  Report Type: 
  Country: None (occurrence: None)
  Receive Date: 20120613
  Receipt Date: 20120605
  Transmission Date: 20120825
  Serious: Yes (Hospitalization)
  Sender: FDA-Public Use
  Company Number: BR-ROCHE-696641

PATIENT
  Sex: Male
  Weight: 82 kg

DRUGS (76)
  1. GLYBURIDE [Concomitant]
     Indication: DIABETES MELLITUS
     Dates: start: 20100128, end: 20100403
  2. GLYBURIDE [Concomitant]
     Dates: start: 20100405, end: 20100405
  3. GLYBURIDE [Concomitant]
     Dates: start: 20100429, end: 20100429
  4. DORFLEX [Concomitant]
     Indication: PAIN PROPHYLAXIS
     Dates: start: 20100103, end: 20100403
  5. DIPYRONE TAB [Concomitant]
     Dates: start: 20100425, end: 20100429
  6. CLOBUTINOL [Concomitant]
     Indication: PAIN PROPHYLAXIS
     Dates: start: 20100428, end: 20100428
  7. IPRATROPIUM BROMIDE [Concomitant]
     Indication: PROPHYLAXIS
     Dates: start: 20100501, end: 20100509
  8. HALOPERIDOL [Concomitant]
     Dates: start: 20100506, end: 20100509
  9. GLYBURIDE [Concomitant]
     Dates: start: 20100407, end: 20100408
  10. DORFLEX [Concomitant]
     Dates: start: 20100414, end: 20100424
  11. PAROXETINE [Concomitant]
     Dates: start: 20100509
  12. DOMPERIDONE [Concomitant]
     Dates: start: 20100414, end: 20100424
  13. LEVOTHYROXINE SODIUM [Concomitant]
     Dates: start: 20100407, end: 20100408
  14. LEVOTHYROXINE SODIUM [Concomitant]
     Dates: start: 20100502, end: 20100502
  15. HEPARIN [Concomitant]
     Indication: THROMBOSIS PROPHYLAXIS
     Dates: start: 20100412, end: 20100412
  16. DIPYRONE TAB [Concomitant]
     Dates: start: 20100508, end: 20100508
  17. FENOTEROL [Concomitant]
     Indication: PROPHYLAXIS
     Dates: start: 20100501, end: 20100509
  18. SODIUM CHLORIDE [Concomitant]
     Indication: PROPHYLAXIS
     Dates: start: 20100409, end: 20100412
  19. ROFERON-A [Suspect]
     Indication: RENAL CELL CARCINOMA
     Route: 058
  20. GLYBURIDE [Concomitant]
     Dates: start: 20100502, end: 20100503
  21. PAROXETINE [Concomitant]
     Indication: DEPRESSION
     Dates: start: 20091230, end: 20100405
  22. ONDANSETRON [Concomitant]
     Indication: PROPHYLAXIS OF NAUSEA AND VOMITING
     Dates: start: 20100310, end: 20100403
  23. LEVOTHYROXINE SODIUM [Concomitant]
     Dates: start: 20100429, end: 20100429
  24. BROMAZEPAM [Concomitant]
     Dates: start: 20100427, end: 20100428
  25. DRAMIN [Concomitant]
     Dates: start: 20100414, end: 20100424
  26. GLICERINA [Concomitant]
     Indication: PROPHYLAXIS
     Dates: start: 20100502, end: 20100504
  27. SODIUM CHLORIDE [Concomitant]
     Dates: start: 20100425, end: 20100428
  28. HALOPERIDOL [Concomitant]
     Indication: PROPHYLAXIS
     Dates: start: 20100503, end: 20100503
  29. PAROXETINE [Concomitant]
     Dates: start: 20100414, end: 20100424
  30. ONDANSETRON [Concomitant]
     Dates: start: 20100501, end: 20100504
  31. DOMPERIDONE [Concomitant]
     Indication: PROPHYLAXIS OF NAUSEA AND VOMITING
     Dates: start: 20100324, end: 20100408
  32. BETAHISTINE [Concomitant]
     Dates: start: 20100510
  33. LEVOTHYROXINE SODIUM [Concomitant]
     Dates: start: 20100414, end: 20100424
  34. CLORPROMAZINA [Concomitant]
     Indication: PROPHYLAXIS
     Dates: start: 20100428, end: 20100429
  35. TRIGLYCERIDES [Concomitant]
     Indication: PROPHYLAXIS
     Dates: start: 20100503, end: 20100509
  36. DOMPERIDONE [Concomitant]
     Indication: PROPHYLAXIS
     Dates: start: 20100506, end: 20100509
  37. DEXPANTHENOL [Concomitant]
     Indication: PROPHYLAXIS
     Dates: start: 20100506, end: 20100509
  38. ROFERON-A [Suspect]
     Dosage: DOSE REDUCED  DOSE: 6MU SINCE CYCLE 4
     Route: 042
  39. GLYBURIDE [Concomitant]
     Dates: start: 20100414, end: 20100424
  40. GLYBURIDE [Concomitant]
     Dates: start: 20100510
  41. LEVOTHYROXINE SODIUM [Concomitant]
     Indication: HYPOTHYROIDISM
     Dates: start: 20080101, end: 20100404
  42. LEVOTHYROXINE SODIUM [Concomitant]
     Dates: start: 20100427, end: 20100427
  43. BROMAZEPAM [Concomitant]
     Indication: PROPHYLAXIS
     Dates: start: 20100412, end: 20100412
  44. BROMAZEPAM [Concomitant]
     Dates: start: 20100414
  45. MAGNESIUM OXIDE [Concomitant]
     Indication: PROPHYLAXIS
     Dates: start: 20100428, end: 20100428
  46. TRAMADOL HCL [Concomitant]
     Indication: PROPHYLAXIS
     Dates: start: 20100425, end: 20100425
  47. DIPYRONE TAB [Concomitant]
     Dates: start: 20100410, end: 20100413
  48. IPRATROPIUM BROMIDE [Concomitant]
     Dates: start: 20100501, end: 20100509
  49. DRAMIN [Concomitant]
     Indication: PROPHYLAXIS
     Route: 065
     Dates: start: 20100202, end: 20100403
  50. GLYBURIDE [Concomitant]
     Dates: start: 20100427, end: 20100427
  51. PAROXETINE [Concomitant]
     Dates: start: 20100427, end: 20100429
  52. ONDANSETRON [Concomitant]
     Dates: start: 20100407, end: 20100408
  53. BETAHISTINE [Concomitant]
     Indication: DIZZINESS
     Dates: start: 20100324, end: 20100406
  54. BETAHISTINE [Concomitant]
     Dates: start: 20100414, end: 20100424
  55. OMEPRAZOLE [Concomitant]
     Dates: start: 20100425, end: 20100425
  56. OMEPRAZOLE [Concomitant]
     Dates: start: 20100430, end: 20100509
  57. DRAMIN [Concomitant]
     Indication: PROPHYLAXIS OF NAUSEA AND VOMITING
     Dates: start: 20100202, end: 20100403
  58. HEPARIN [Concomitant]
     Dates: start: 20100430, end: 20100509
  59. DIPYRONE TAB [Concomitant]
     Indication: PROPHYLAXIS
     Dates: start: 20100403
  60. DIPYRONE TAB [Concomitant]
     Dates: start: 20100504, end: 20100504
  61. BROMOPRIDE [Concomitant]
     Indication: PROPHYLAXIS
     Dates: start: 20100430, end: 20100506
  62. DRAMIN [Concomitant]
     Route: 065
     Dates: start: 20100414
  63. AVASTIN [Suspect]
     Indication: RENAL CELL CARCINOMA
     Dosage: FREQUENCY REPORTED EVERY OTHER WEEK
     Route: 042
     Dates: start: 20091216, end: 20100324
  64. DOMPERIDONE [Concomitant]
     Dates: start: 20100506, end: 20100509
  65. LEVOTHYROXINE SODIUM [Concomitant]
     Dates: start: 20100504
  66. ATROVENT [Concomitant]
     Indication: PROPHYLAXIS
     Dates: start: 20100428, end: 20100428
  67. DIMETICONE [Concomitant]
     Indication: PROPHYLAXIS
     Dates: start: 20100501, end: 20100508
  68. MINERAL OIL [Concomitant]
     Indication: PROPHYLAXIS
     Dates: start: 20100501, end: 20100503
  69. PAROXETINE [Concomitant]
     Dates: start: 20100502, end: 20100502
  70. PAROXETINE [Concomitant]
     Dates: start: 20100504, end: 20100507
  71. ONDANSETRON [Concomitant]
     Dates: start: 20100414, end: 20100424
  72. OMEPRAZOLE [Concomitant]
     Indication: DYSPEPSIA
     Dates: start: 20100411, end: 20100412
  73. HEPARIN [Concomitant]
     Dates: start: 20100425, end: 20100425
  74. DIPYRONE TAB [Concomitant]
     Dates: start: 20100501, end: 20100502
  75. LORAZEPAM [Concomitant]
     Indication: PROPHYLAXIS
     Dates: start: 20100501, end: 20100502
  76. IPRATROPIUM BROMIDE [Concomitant]
     Dates: start: 20100428, end: 20100428

REACTIONS (2)
  - PERITONITIS [None]
  - GASTROINTESTINAL PERFORATION [None]
